FAERS Safety Report 24130030 (Version 4)
Quarter: 2024Q3

REPORT INFORMATION
  Report Type: Report from Study
  Country: PR (occurrence: PR)
  Receive Date: 20240724
  Receipt Date: 20240820
  Transmission Date: 20241017
  Serious: Yes (Hospitalization)
  Sender: BRISTOL MYERS SQUIBB
  Company Number: PR-BRISTOL-MYERS SQUIBB COMPANY-2024-112769

PATIENT
  Age: 73 Year
  Sex: Male

DRUGS (2)
  1. KRAZATI [Suspect]
     Active Substance: ADAGRASIB
     Indication: Lung neoplasm malignant
     Dosage: BID
     Route: 048
  2. KRAZATI [Suspect]
     Active Substance: ADAGRASIB
     Dosage: BID
     Route: 048
     Dates: start: 20240711, end: 20240714

REACTIONS (8)
  - Lung disorder [Not Recovered/Not Resolved]
  - Feeling abnormal [Recovering/Resolving]
  - Somnolence [Recovering/Resolving]
  - Asthenia [Recovering/Resolving]
  - Decreased appetite [Not Recovered/Not Resolved]
  - Lethargy [Recovering/Resolving]
  - Incoherent [Not Recovered/Not Resolved]
  - Confusional state [Not Recovered/Not Resolved]

NARRATIVE: CASE EVENT DATE: 20240711
